FAERS Safety Report 7977395 (Version 4)
Quarter: 2013Q3

REPORT INFORMATION
  Report Type: Spontaneous
  Country: US (occurrence: US)
  Receive Date: 20110607
  Receipt Date: 20130813
  Transmission Date: 20140515
  Serious: Yes (Other)
  Sender: FDA-Public Use
  Company Number: US-ASTRAZENECA-2010SE26464

PATIENT
  Age: 75 Year
  Sex: Female
  Weight: 56.2 kg

DRUGS (16)
  1. PRILOSEC [Suspect]
     Indication: GASTROOESOPHAGEAL REFLUX DISEASE
     Route: 048
     Dates: start: 1998, end: 201306
  2. PRILOSEC [Suspect]
     Indication: GASTROOESOPHAGEAL REFLUX DISEASE
     Route: 048
     Dates: start: 2000, end: 20130707
  3. PRILOSEC [Suspect]
     Indication: GASTROOESOPHAGEAL REFLUX DISEASE
     Route: 048
     Dates: start: 201306, end: 20130724
  4. PRILOSEC [Suspect]
     Indication: GASTROOESOPHAGEAL REFLUX DISEASE
     Route: 048
  5. PRILOSEC [Suspect]
     Indication: GASTROOESOPHAGEAL REFLUX DISEASE
     Dosage: 40 MG AND 60 MG OF PRILOSEC A DAY
     Route: 048
  6. PRILOSEC [Suspect]
     Indication: GASTROOESOPHAGEAL REFLUX DISEASE
     Route: 048
     Dates: start: 20130708
  7. PRILOSEC [Suspect]
     Indication: GASTROOESOPHAGEAL REFLUX DISEASE
     Route: 048
     Dates: start: 20130725
  8. ATENOLOL [Suspect]
     Indication: HYPERTENSION
     Route: 048
  9. LIBRAX [Concomitant]
     Indication: ABDOMINAL PAIN UPPER
  10. ATIVAN [Concomitant]
     Indication: DEPRESSION
     Route: 048
  11. ATIVAN [Concomitant]
     Indication: ANXIETY
     Route: 048
  12. DICYCLOMINE [Concomitant]
     Indication: IRRITABLE BOWEL SYNDROME
     Route: 048
  13. LEXAPRO [Concomitant]
     Indication: ANXIETY
     Route: 048
  14. ZYPREXA [Concomitant]
     Indication: DEPRESSION
     Route: 048
  15. LORTAB [Concomitant]
     Indication: PAIN
     Dosage: 2 TEASPOON AT NIGHT
     Route: 048
  16. COLACE [Concomitant]
     Indication: FAECES HARD
     Route: 048

REACTIONS (12)
  - Fall [Recovering/Resolving]
  - Foot fracture [Unknown]
  - Spinal fracture [Unknown]
  - Pelvic fracture [Unknown]
  - Dysphagia [Unknown]
  - Gastrooesophageal reflux disease [Unknown]
  - Urinary tract infection [Unknown]
  - Polyp [Unknown]
  - Hearing impaired [Unknown]
  - Abdominal pain upper [Unknown]
  - Nausea [Unknown]
  - Intentional drug misuse [Unknown]
